FAERS Safety Report 5841031-4 (Version None)
Quarter: 2008Q3

REPORT INFORMATION
  Report Type: 
  Country: None (occurrence: None)
  Receive Date: 20080811
  Receipt Date: 20080711
  Transmission Date: 20090109
  Serious: Yes (Other)
  Sender: FDA-Public Use
  Company Number: US-MERCK-0807USA02996

PATIENT
  Age: 32 Year
  Sex: Female

DRUGS (10)
  1. SINGULAIR [Suspect]
     Route: 048
     Dates: start: 20000101, end: 20050601
  2. ACIPHEX [Concomitant]
     Route: 065
  3. ALBUTEROL [Concomitant]
     Route: 065
  4. ARAVA [Concomitant]
     Route: 065
  5. DARVOCET-N 100 [Concomitant]
     Route: 065
  6. ENBREL [Concomitant]
     Route: 065
     Dates: start: 20020201
  7. NATAFORT PRENATAL VITAMIN [Concomitant]
     Route: 065
  8. PREDNISONE [Concomitant]
     Route: 065
     Dates: start: 20020101
  9. PULMICORT-100 [Concomitant]
     Route: 065
  10. [THERAPY UNSPECIFIED] [Concomitant]
     Route: 065

REACTIONS (7)
  - ADVERSE EVENT [None]
  - BRONCHITIS [None]
  - DRUG EXPOSURE DURING PREGNANCY [None]
  - OXYGEN CONSUMPTION DECREASED [None]
  - PROLONGED LABOUR [None]
  - RHEUMATOID ARTHRITIS [None]
  - SINUSITIS [None]
